FAERS Safety Report 9169728 (Version 6)
Quarter: 2014Q1

REPORT INFORMATION
  Report Type: Spontaneous
  Country: US (occurrence: US)
  Receive Date: 20130318
  Receipt Date: 20140303
  Transmission Date: 20141002
  Serious: Yes (Hospitalization, Other)
  Sender: FDA-Public Use
  Company Number: US-009507513-1303USA007542

PATIENT
  Sex: Female
  Weight: 56.24 kg

DRUGS (7)
  1. FOSAMAX [Suspect]
     Indication: OSTEOPOROSIS
     Dosage: 70 MG, QW
     Route: 048
  2. ALENDRONATE SODIUM [Suspect]
     Dosage: 70 MG, QW
     Route: 048
  3. VITAMINS (UNSPECIFIED) [Concomitant]
     Dosage: UNK
     Dates: start: 1990
  4. VITAMIN D (UNSPECIFIED) [Concomitant]
     Dosage: UNK
     Dates: start: 1990
  5. CYANOCOBALAMIN [Concomitant]
     Dosage: UNK
     Dates: start: 1990
  6. CALCIUM (UNSPECIFIED) [Concomitant]
     Dosage: UNK
     Dates: start: 1990
  7. LEVOTHYROXINE SODIUM [Concomitant]
     Indication: HYPOTHYROIDISM

REACTIONS (54)
  - Femur fracture [Unknown]
  - Internal fixation of fracture [Unknown]
  - Femur fracture [Unknown]
  - Femur fracture [Unknown]
  - Humerus fracture [Unknown]
  - Internal fixation of fracture [Unknown]
  - Acute respiratory failure [Unknown]
  - Pneumonia [Unknown]
  - Rib fracture [Unknown]
  - Cardiac pacemaker insertion [Unknown]
  - Surgery [Unknown]
  - Pulmonary contusion [Unknown]
  - Subcutaneous emphysema [Unknown]
  - Surgery [Unknown]
  - Cerebrovascular accident [Unknown]
  - Fall [Unknown]
  - Low turnover osteopathy [Unknown]
  - Upper limb fracture [Unknown]
  - Depression [Not Recovered/Not Resolved]
  - Anxiety [Not Recovered/Not Resolved]
  - Adverse event [Unknown]
  - Hypercholesterolaemia [Unknown]
  - Hypertension [Unknown]
  - Exostosis [Unknown]
  - Chronic obstructive pulmonary disease [Not Recovered/Not Resolved]
  - Atrial fibrillation [Not Recovered/Not Resolved]
  - Cardiac ablation [Unknown]
  - Osteoarthritis [Unknown]
  - Mitral valve incompetence [Unknown]
  - Aortic valve incompetence [Unknown]
  - Pulmonary hypertension [Unknown]
  - Upper limb fracture [Unknown]
  - Cough [Unknown]
  - Vascular calcification [Unknown]
  - Upper limb fracture [Unknown]
  - Hypersomnia [Unknown]
  - Mental status changes [Unknown]
  - Sleep apnoea syndrome [Unknown]
  - Osteopenia [Unknown]
  - Leukocytosis [Recovered/Resolved]
  - Fall [Unknown]
  - Anaemia postoperative [Unknown]
  - Osteoarthritis [Unknown]
  - Fall [Unknown]
  - Transient ischaemic attack [Unknown]
  - Injury [Unknown]
  - Spinal osteoarthritis [Unknown]
  - Crepitations [Not Recovered/Not Resolved]
  - Joint effusion [Unknown]
  - Lumbar spinal stenosis [Unknown]
  - Rotator cuff syndrome [Unknown]
  - Sciatica [Unknown]
  - Joint injury [Unknown]
  - Osteoarthritis [Unknown]
